FAERS Safety Report 20299335 (Version 1)
Quarter: 2022Q1

REPORT INFORMATION
  Report Type: Spontaneous
  Country: US (occurrence: None)
  Receive Date: 20220104
  Receipt Date: 20220104
  Transmission Date: 20220423
  Serious: No
  Sender: FDA-Public Use
  Company Number: None

PATIENT
  Age: 14 Year
  Sex: Male
  Weight: 47.7 kg

DRUGS (1)
  1. ISOTRETINOIN [Suspect]
     Active Substance: ISOTRETINOIN
     Indication: Acne cystic
     Dosage: FREQUENCY : DAILY;?
     Route: 048
     Dates: start: 20211022, end: 20211224

REACTIONS (3)
  - Product availability issue [None]
  - Therapy interrupted [None]
  - Mental disorder [None]

NARRATIVE: CASE EVENT DATE: 20211230
